FAERS Safety Report 25204515 (Version 1)
Quarter: 2025Q2

REPORT INFORMATION
  Report Type: Spontaneous
  Country: VE (occurrence: VE)
  Receive Date: 20250416
  Receipt Date: 20250416
  Transmission Date: 20250717
  Serious: Yes (Death, Hospitalization, Other)
  Sender: NOVARTIS
  Company Number: VE-002147023-NVSC2025VE062440

PATIENT
  Sex: Male

DRUGS (1)
  1. GLIVEC [Suspect]
     Active Substance: IMATINIB MESYLATE
     Indication: Chronic myeloid leukaemia
     Route: 065

REACTIONS (7)
  - Cardiac arrest [Fatal]
  - Haematoma [Unknown]
  - Headache [Unknown]
  - Nausea [Unknown]
  - Nephrolithiasis [Recovering/Resolving]
  - Back pain [Unknown]
  - Diarrhoea [Unknown]
